FAERS Safety Report 7636288-3 (Version None)
Quarter: 2011Q3

REPORT INFORMATION
  Report Type: 
  Country: None (occurrence: None)
  Receive Date: 20110726
  Receipt Date: 20090727
  Transmission Date: 20111222
  Serious: Yes (Other)
  Sender: FDA-Public Use
  Company Number: US-GLAXOSMITHKLINE-A0748837A

PATIENT
  Age: 33 Year
  Sex: Male

DRUGS (3)
  1. LAMICTAL [Suspect]
     Indication: CONVULSION
     Dosage: 200MG UNKNOWN
     Route: 048
     Dates: start: 20071201, end: 20080101
  2. BETASERON [Suspect]
     Indication: MULTIPLE SCLEROSIS
     Dosage: 8UNIT ALTERNATE DAYS
     Route: 058
     Dates: start: 20070828, end: 20090318
  3. NEURONTIN [Concomitant]

REACTIONS (11)
  - DROOLING [None]
  - ABDOMINAL PAIN [None]
  - INJECTION SITE ERYTHEMA [None]
  - MUSCULOSKELETAL CHEST PAIN [None]
  - RASH [None]
  - EXCORIATION [None]
  - MIDDLE INSOMNIA [None]
  - INJECTION SITE PAIN [None]
  - CONVULSION [None]
  - FALL [None]
  - DYSARTHRIA [None]
